FAERS Safety Report 7124604-0 (Version None)
Quarter: 2010Q4

REPORT INFORMATION
  Report Type: 
  Country: None (occurrence: None)
  Receive Date: 20101122
  Receipt Date: 20101122
  Transmission Date: 20110411
  Serious: Yes (Other)
  Sender: FDA-Public Use
  Company Number: None

PATIENT
  Age: 60 Year
  Sex: Female
  Weight: 72.5755 kg

DRUGS (1)
  1. TRILIPIX [Suspect]
     Indication: HYPERTRIGLYCERIDAEMIA
     Dosage: 1 CAPSULE DAILY PO
     Route: 048
     Dates: start: 20100601, end: 20100904

REACTIONS (2)
  - BLISTER [None]
  - PHOTOSENSITIVITY REACTION [None]
